FAERS Safety Report 8961498 (Version 2)
Quarter: 2013Q1

REPORT INFORMATION
  Report Type: Spontaneous
  Country: US (occurrence: US)
  Receive Date: 20121213
  Receipt Date: 20130129
  Transmission Date: 20140127
  Serious: Yes (Life-Threatening, Hospitalization, Other)
  Sender: FDA-Public Use
  Company Number: US-JNJFOC-20121202680

PATIENT
  Age: 62 Year
  Sex: Female
  Weight: 130.95 kg

DRUGS (30)
  1. XARELTO [Suspect]
     Indication: ANTICOAGULANT THERAPY
     Route: 048
     Dates: start: 20121023, end: 20121024
  2. XARELTO [Suspect]
     Indication: THROMBOSIS PROPHYLAXIS
     Route: 048
     Dates: start: 20121023, end: 20121024
  3. XARELTO [Suspect]
     Indication: KNEE ARTHROPLASTY
     Route: 048
     Dates: start: 20121023, end: 20121024
  4. COUMADIN [Suspect]
     Indication: ANTICOAGULANT THERAPY
     Route: 065
  5. ASPIRIN [Suspect]
     Indication: ANTICOAGULANT THERAPY
     Route: 065
  6. LOVENOX [Suspect]
     Indication: ANTICOAGULANT THERAPY
     Route: 065
  7. ALLOPURINOL [Concomitant]
     Route: 048
  8. INDOMETHACIN [Concomitant]
     Route: 048
  9. NORVASC [Concomitant]
     Route: 048
  10. SIMVASTATIN [Concomitant]
     Route: 048
  11. LOTENSIN [Concomitant]
     Route: 048
  12. TORADOL [Concomitant]
     Indication: PRODUCT USED FOR UNKNOWN INDICATION
     Route: 042
     Dates: start: 20121022
  13. TYLENOL [Concomitant]
     Indication: PYREXIA
     Route: 048
  14. TYLENOL [Concomitant]
     Indication: PAIN
     Route: 048
  15. HYDROCODONE BITARTRATE AND ACETAMINOPHEN [Concomitant]
     Indication: PAIN
     Dosage: 7.5/325 MG, 1-2 PER ORAL
     Route: 048
  16. HYDROCODONE BITARTRATE AND ACETAMINOPHEN [Concomitant]
     Indication: PAIN
     Dosage: 10/325 MG, 1-2 PER ORAL
     Route: 048
  17. HYDROCODONE BITARTRATE AND ACETAMINOPHEN [Concomitant]
     Indication: PAIN
     Dosage: 5/325 MG, 1-2 PER ORAL
     Route: 048
  18. REGLAN [Concomitant]
     Indication: PAIN
     Route: 042
  19. ZOFRAN [Concomitant]
     Indication: NAUSEA
     Route: 042
  20. VISTARIL [Concomitant]
     Indication: PAIN
     Dosage: 5/325 MG, 1-2 PER ORAL
     Route: 048
  21. FERROUS SULFATE [Concomitant]
     Route: 048
  22. AMBIEN [Concomitant]
     Route: 048
  23. DULCOLAX [Concomitant]
     Route: 065
  24. MAGNESIUM HYDROXIDE [Concomitant]
     Route: 065
  25. COLACE [Concomitant]
     Route: 065
  26. MORPHINE [Concomitant]
     Route: 065
  27. MEPERIDINE [Concomitant]
     Route: 065
  28. FENTANYL [Concomitant]
     Route: 065
  29. BENADRYL [Concomitant]
     Indication: PRURITUS
     Dosage: 25-50MG
     Route: 065
  30. NUBAIN [Concomitant]
     Indication: PRURITUS
     Dosage: 5-10 MG
     Route: 042

REACTIONS (1)
  - Pulmonary embolism [Recovering/Resolving]
